FAERS Safety Report 10402006 (Version 4)
Quarter: 2014Q4

REPORT INFORMATION
  Report Type: Spontaneous
  Country: US (occurrence: US)
  Receive Date: 20140822
  Receipt Date: 20141006
  Transmission Date: 20150528
  Serious: Yes (Other)
  Sender: FDA-Public Use
  Company Number: US-TEVA-503607USA

PATIENT
  Age: 77 Year
  Sex: Female
  Weight: 63.56 kg

DRUGS (11)
  1. MIDODRINE [Concomitant]
     Active Substance: MIDODRINE
     Indication: HYPOTENSION
  2. PANTOPRAZOLE [Concomitant]
     Active Substance: PANTOPRAZOLE SODIUM
     Indication: GASTROOESOPHAGEAL REFLUX DISEASE
  3. DULCOLAX [Concomitant]
     Active Substance: BISACODYL OR DOCUSATE SODIUM
     Indication: CONSTIPATION
  4. OCUVITE [Concomitant]
     Active Substance: VITAMINS
     Indication: DRY EYE
  5. THERATEARS [Concomitant]
     Active Substance: CARBOXYMETHYLCELLULOSE SODIUM
     Indication: DRY EYE
  6. AZILECT [Suspect]
     Active Substance: RASAGILINE MESYLATE
     Indication: PARKINSON^S DISEASE
     Route: 065
     Dates: start: 201402
  7. PRAMIPEXOLE [Concomitant]
     Active Substance: PRAMIPEXOLE
     Indication: PARKINSON^S DISEASE
  8. OCUVITE [Concomitant]
     Active Substance: VITAMINS
     Indication: EYE OPERATION
  9. PAROXETINE [Suspect]
     Active Substance: PAROXETINE\PAROXETINE HYDROCHLORIDE
     Route: 065
  10. OMEGA 3 FISH OIL [Concomitant]
     Active Substance: FISH OIL\OMEGA-3 FATTY ACIDS
     Indication: NUTRITIONAL SUPPLEMENTATION
  11. CALCIUM 2400 [Concomitant]
     Indication: NUTRITIONAL SUPPLEMENTATION

REACTIONS (17)
  - Incorrect dose administered [Recovered/Resolved]
  - Thinking abnormal [Unknown]
  - Swollen tongue [Recovered/Resolved]
  - Aphasia [Recovered/Resolved]
  - Urinary incontinence [Unknown]
  - Pyrexia [Unknown]
  - Nightmare [Unknown]
  - Ear discomfort [Unknown]
  - Malaise [Unknown]
  - Visual impairment [Unknown]
  - Abasia [Recovered/Resolved]
  - Blindness [Recovered/Resolved]
  - Hyperhidrosis [Unknown]
  - Gait disturbance [Recovered/Resolved]
  - Erythema [Unknown]
  - Renal disorder [Unknown]
  - Medication error [Recovered/Resolved]

NARRATIVE: CASE EVENT DATE: 20140814
